FAERS Safety Report 6626534 (Version 5)
Quarter: 2013Q3

REPORT INFORMATION
  Report Type: Spontaneous
  Country: CA (occurrence: CA)
  Receive Date: 20080428
  Receipt Date: 20130821
  Transmission Date: 20140515
  Serious: Yes (Death, Hospitalization)
  Sender: FDA-Public Use
  Company Number: CA-ROCHE-559517

PATIENT
  Age: 48 Year
  Sex: Male

DRUGS (12)
  1. NAPROXEN [Suspect]
     Indication: BACK PAIN
     Route: 065
  2. FUROSEMIDE [Suspect]
     Indication: ASCITES
     Route: 065
  3. SPIRONOLACTONE [Suspect]
     Indication: ASCITES
     Route: 065
  4. TENOFOVIR [Interacting]
     Indication: HIV INFECTION
     Route: 065
  5. DIDANOSINE [Suspect]
     Indication: HIV INFECTION
     Route: 065
  6. RITONAVIR [Concomitant]
  7. LOPINAVIR [Concomitant]
     Indication: HIV INFECTION
  8. HYDROMORPHONE [Concomitant]
  9. QUININE [Concomitant]
  10. OMEPRAZOLE [Concomitant]
  11. DIMENHYDRINATE [Concomitant]
  12. CO-TRIMOXAZOLE [Concomitant]
     Route: 065

REACTIONS (12)
  - Renal tubular necrosis [Fatal]
  - Blood creatinine increased [Fatal]
  - Blood phosphorus increased [Fatal]
  - Blood urea increased [Fatal]
  - Renal failure [Fatal]
  - Blood HIV RNA decreased [Fatal]
  - CD4 lymphocytes decreased [Fatal]
  - Drug interaction [Fatal]
  - General physical health deterioration [Fatal]
  - Hepatorenal syndrome [Fatal]
  - Viral load decreased [Fatal]
  - Blood potassium increased [Recovered/Resolved]
